FAERS Safety Report 5026960-6 (Version None)
Quarter: 2006Q2

REPORT INFORMATION
  Report Type: 
  Country: None (occurrence: None)
  Receive Date: 20060609
  Receipt Date: 20060530
  Transmission Date: 20061013
  Serious: No
  Sender: FDA-Public Use
  Company Number: E2090-00014-SPO-JP

PATIENT
  Age: 72 Year
  Sex: Male

DRUGS (6)
  1. ZONISAMIDE [Suspect]
     Indication: EPILEPSY
     Dosage: 400 MG, 2 IN 1 D, ORAL
     Route: 048
     Dates: start: 20060415, end: 20060511
  2. TICLOPIDINE HCL [Concomitant]
  3. ALLOPURINOL [Concomitant]
  4. LONGES (LISINOPRIL) [Concomitant]
  5. NORVASC [Concomitant]
  6. CEFDINIR [Concomitant]

REACTIONS (2)
  - AGRANULOCYTOSIS [None]
  - PYREXIA [None]
